FAERS Safety Report 24747321 (Version 3)
Quarter: 2025Q1

REPORT INFORMATION
  Report Type: Spontaneous
  Country: KR (occurrence: KR)
  Receive Date: 20241218
  Receipt Date: 20250210
  Transmission Date: 20250408
  Serious: Yes (Other)
  Sender: MYLAN
  Company Number: KR-MYLANLABS-2024M1031947

PATIENT
  Age: 72 Year
  Sex: Female

DRUGS (8)
  1. CLOZARIL [Suspect]
     Active Substance: CLOZAPINE
     Indication: Schizophrenia
     Route: 065
     Dates: end: 20171115
  2. CLOZARIL [Suspect]
     Active Substance: CLOZAPINE
     Route: 065
  3. CLOZARIL [Suspect]
     Active Substance: CLOZAPINE
     Route: 065
  4. MEDILAC DS [Concomitant]
     Route: 065
  5. GASMON [Concomitant]
     Route: 065
  6. DULCOLAX-S [Concomitant]
     Route: 065
  7. BLONANSERIN [Concomitant]
     Active Substance: BLONANSERIN
     Route: 065
  8. PROPRANOLOL HYDROCHLORIDE [Concomitant]
     Active Substance: PROPRANOLOL HYDROCHLORIDE
     Route: 065

REACTIONS (4)
  - Neutropenia [Recovered/Resolved]
  - COVID-19 [Unknown]
  - White blood cell count decreased [Recovered/Resolved]
  - Off label use [Unknown]

NARRATIVE: CASE EVENT DATE: 20240321
